FAERS Safety Report 5481063-1 (Version None)
Quarter: 2007Q4

REPORT INFORMATION
  Report Type: 
  Country: None (occurrence: None)
  Receive Date: 20071004
  Receipt Date: 20070921
  Transmission Date: 20080405
  Serious: Yes (Hospitalization)
  Sender: FDA-Public Use
  Company Number: ALK_00400_2007

PATIENT
  Sex: Male
  Weight: 77.1115 kg

DRUGS (1)
  1. VIVITROL [Suspect]
     Indication: ALCOHOLISM
     Dosage: 1 X MONTH (380 MG INTRAMUSCULAR
     Route: 030
     Dates: start: 20070901

REACTIONS (4)
  - CONTUSION [None]
  - ROAD TRAFFIC ACCIDENT [None]
  - SOFT TISSUE INJURY [None]
  - TIBIA FRACTURE [None]
